FAERS Safety Report 8601344-X (Version None)
Quarter: 2012Q3

REPORT INFORMATION
  Report Type: 
  Country: None (occurrence: None)
  Receive Date: 20120817
  Receipt Date: 20120815
  Transmission Date: 20120928
  Serious: No
  Sender: FDA-Public Use
  Company Number: US-TEVA-351325USA

PATIENT
  Sex: Female
  Weight: 124.85 kg

DRUGS (2)
  1. PLAN B ONE-STEP [Suspect]
     Indication: POST COITAL CONTRACEPTION
     Dosage: 1.5 MILLIGRAM DAILY;
     Route: 048
     Dates: start: 20120716, end: 20120716
  2. NUVARING [Concomitant]
     Indication: CONTRACEPTION

REACTIONS (2)
  - BREAST PAIN [None]
  - FLATULENCE [None]
